FAERS Safety Report 19012909 (Version 48)
Quarter: 2023Q2

REPORT INFORMATION
  Report Type: Other
  Country: CA (occurrence: None)
  Receive Date: 20210316
  Receipt Date: 20230529
  Transmission Date: 20230721
  Serious: Yes (Hospitalization, Other)
  Sender: FDA-Public Use
  Company Number: CA-ROCHE-2352498

PATIENT
  Age: 12 Year
  Sex: Male
  Weight: 57 kg

DRUGS (31)
  1. ACTEMRA [Suspect]
     Active Substance: TOCILIZUMAB
     Indication: Still^s disease
     Route: 042
     Dates: start: 20190515, end: 20190529
  2. ACTEMRA [Suspect]
     Active Substance: TOCILIZUMAB
     Route: 042
     Dates: start: 20190809
  3. ACTEMRA [Suspect]
     Active Substance: TOCILIZUMAB
     Route: 042
     Dates: start: 20190604, end: 20190604
  4. ACTEMRA [Suspect]
     Active Substance: TOCILIZUMAB
     Route: 042
     Dates: start: 20190628, end: 20190628
  5. ACTEMRA [Suspect]
     Active Substance: TOCILIZUMAB
     Route: 042
     Dates: start: 20190712, end: 20191018
  6. ACTEMRA [Suspect]
     Active Substance: TOCILIZUMAB
     Route: 042
     Dates: start: 20190725, end: 20191018
  7. ACTEMRA [Suspect]
     Active Substance: TOCILIZUMAB
     Route: 042
     Dates: start: 20190614, end: 20190712
  8. ACTEMRA [Suspect]
     Active Substance: TOCILIZUMAB
     Route: 042
     Dates: start: 20191101, end: 20200929
  9. ACTEMRA [Suspect]
     Active Substance: TOCILIZUMAB
     Route: 042
     Dates: start: 20190516
  10. ACTEMRA [Suspect]
     Active Substance: TOCILIZUMAB
     Route: 042
     Dates: start: 20190614, end: 20191018
  11. ACTEMRA [Suspect]
     Active Substance: TOCILIZUMAB
     Route: 042
     Dates: start: 20190515, end: 20190529
  12. ACTEMRA [Suspect]
     Active Substance: TOCILIZUMAB
     Route: 042
     Dates: start: 20201015, end: 20210902
  13. ACTEMRA [Suspect]
     Active Substance: TOCILIZUMAB
     Route: 042
     Dates: start: 20210805
  14. ACTEMRA [Suspect]
     Active Substance: TOCILIZUMAB
     Dosage: ADDITIONAL BATCH FROM 11-NOV-2021: B3041 (31/DEC/2023)
     Route: 042
     Dates: start: 20210916, end: 20220120
  15. ACTEMRA [Suspect]
     Active Substance: TOCILIZUMAB
     Route: 042
     Dates: start: 20220203, end: 20221027
  16. ACTEMRA [Suspect]
     Active Substance: TOCILIZUMAB
     Route: 042
     Dates: start: 20221110, end: 20221110
  17. ACTEMRA [Suspect]
     Active Substance: TOCILIZUMAB
     Dosage: PREVIOUS INFUSION: 20-JAN-2023
     Route: 042
     Dates: start: 20221124
  18. METHOTREXATE [Suspect]
     Active Substance: METHOTREXATE
     Indication: Intentional product use issue
     Route: 058
     Dates: start: 20191228, end: 20200109
  19. METHOTREXATE [Suspect]
     Active Substance: METHOTREXATE
     Route: 058
     Dates: start: 20200110
  20. METHOTREXATE [Suspect]
     Active Substance: METHOTREXATE
     Route: 058
  21. PREDNISONE [Concomitant]
     Active Substance: PREDNISONE
     Indication: Product used for unknown indication
  22. STRATTERA [Concomitant]
     Active Substance: ATOMOXETINE HYDROCHLORIDE
     Indication: Product used for unknown indication
     Route: 065
  23. STRATTERA [Concomitant]
     Active Substance: ATOMOXETINE HYDROCHLORIDE
     Route: 065
  24. STRATTERA [Concomitant]
     Active Substance: ATOMOXETINE HYDROCHLORIDE
     Route: 065
  25. FOLIC ACID [Concomitant]
     Active Substance: FOLIC ACID
     Dosage: INDICATION : COMBINATION WITH METHOTREXATE/BONE PROTECTION
     Dates: start: 20191227
  26. PREVACID [Concomitant]
     Active Substance: LANSOPRAZOLE
     Indication: Product used for unknown indication
  27. VENTOLIN [Concomitant]
     Active Substance: ALBUTEROL SULFATE
     Indication: Bronchitis
  28. VENTOLIN [Concomitant]
     Active Substance: ALBUTEROL SULFATE
     Indication: Cough
  29. ZOFRAN [Concomitant]
     Active Substance: ONDANSETRON HYDROCHLORIDE
     Indication: Premedication
     Dosage: BEFORE METHOTREXATE
  30. BENADRYL [Concomitant]
     Active Substance: DIPHENHYDRAMINE HYDROCHLORIDE
     Indication: Premedication
     Route: 048
     Dates: start: 20210610, end: 20210610
  31. BENADRYL [Concomitant]
     Active Substance: DIPHENHYDRAMINE HYDROCHLORIDE
     Dates: start: 20191227

REACTIONS (21)
  - Tonsillar haemorrhage [Not Recovered/Not Resolved]
  - Bronchitis [Recovering/Resolving]
  - Heart rate increased [Unknown]
  - Blood pressure diastolic decreased [Unknown]
  - Blood pressure diastolic abnormal [Unknown]
  - Oxygen saturation decreased [Unknown]
  - Product prescribing error [Unknown]
  - Arthralgia [Not Recovered/Not Resolved]
  - Spinal disorder [Unknown]
  - Chest pain [Unknown]
  - Rash [Unknown]
  - Cough [Unknown]
  - Blood pressure diastolic increased [Unknown]
  - Oropharyngeal pain [Recovering/Resolving]
  - Hypotension [Unknown]
  - Nasopharyngitis [Recovered/Resolved]
  - Weight increased [Unknown]
  - Nausea [Unknown]
  - Oesophageal spasm [Unknown]
  - Hallucination [Unknown]
  - Off label use [Unknown]

NARRATIVE: CASE EVENT DATE: 20190628
